FAERS Safety Report 8354447-1 (Version None)
Quarter: 2012Q2

REPORT INFORMATION
  Report Type: 
  Country: None (occurrence: None)
  Receive Date: 20120511
  Receipt Date: 20091229
  Transmission Date: 20120825
  Serious: Yes (Other)
  Sender: FDA-Public Use
  Company Number: TW-ROCHE-676959

PATIENT
  Age: 40 Year
  Sex: Female

DRUGS (3)
  1. HERCEPTIN [Suspect]
     Dosage: MAINTENANCE DOSE.  FORM REPORTED AS INFUSION.
     Route: 042
  2. HERCEPTIN [Suspect]
     Indication: BREAST CANCER METASTATIC
     Dosage: LOADING DOSE.  FORM REPORTED AS INFUSION.
     Route: 042
  3. TAXOTERE [Suspect]
     Indication: BREAST CANCER METASTATIC
     Route: 065

REACTIONS (1)
  - BREAST CANCER METASTATIC [None]
